FAERS Safety Report 9880763 (Version 1)
Quarter: 2014Q1

REPORT INFORMATION
  Report Type: Spontaneous
  Country: US (occurrence: None)
  Receive Date: 20140206
  Receipt Date: 20140206
  Transmission Date: 20141002
  Serious: Yes (Other)
  Sender: FDA-Public Use
  Company Number: None

PATIENT
  Age: 36 Year
  Sex: Female

DRUGS (9)
  1. LETAIRIS [Suspect]
     Indication: PULMONARY HYPERTENSION
     Route: 048
     Dates: start: 20131207, end: 20131231
  2. SOTALOL [Concomitant]
  3. SPIRONOLACTONE [Concomitant]
  4. DIGOXIN [Concomitant]
  5. WARFARIN [Concomitant]
  6. FUROSEMIDE [Concomitant]
  7. MAG-OXIDE [Concomitant]
  8. OXYCODONE/APAP [Concomitant]
  9. ASA [Concomitant]

REACTIONS (3)
  - Oedema [None]
  - Weight increased [None]
  - Gait disturbance [None]
